FAERS Safety Report 7553467-4 (Version None)
Quarter: 2011Q2

REPORT INFORMATION
  Report Type: 
  Country: None (occurrence: None)
  Receive Date: 20110617
  Receipt Date: 20110128
  Transmission Date: 20111010
  Serious: Yes (Hospitalization, Other)
  Sender: FDA-Public Use
  Company Number: US-BAYER-201028640NA

PATIENT
  Age: 48 Year
  Sex: Female
  Weight: 66 kg

DRUGS (11)
  1. YASMIN [Suspect]
     Indication: CONTRACEPTION
     Route: 048
     Dates: start: 20020801
  2. TRIMETHOPRIM [Concomitant]
  3. HORMONES NOS [Concomitant]
     Dosage: UNK
     Dates: start: 20020101, end: 20070704
  4. CELEBREX [Concomitant]
     Route: 048
  5. AMOXICILLIN AND CLAVULANATE POTASSIUM [Concomitant]
  6. FLUCONAZOLE [Concomitant]
  7. RESTORIL [Concomitant]
     Indication: SLEEP DISORDER THERAPY
     Dosage: DAILY DOSE 14 MG
     Route: 048
     Dates: end: 20070704
  8. ASPIRIN [Concomitant]
     Route: 048
  9. ALLEGRA [Concomitant]
     Indication: HYPERSENSITIVITY
     Dosage: DAILY DOSE 180 MG
     Route: 048
     Dates: end: 20070704
  10. YASMIN [Suspect]
     Indication: HORMONE REPLACEMENT THERAPY
     Dosage: UNK
     Dates: start: 20030101, end: 20070701
  11. MULTI-VITAMINS [Concomitant]
     Route: 048

REACTIONS (7)
  - COLITIS ISCHAEMIC [None]
  - ABDOMINAL PAIN UPPER [None]
  - CHOLECYSTITIS CHRONIC [None]
  - ABDOMINAL PAIN [None]
  - MENTAL DISORDER [None]
  - BILIARY COLIC [None]
  - GALLBLADDER DISORDER [None]
